FAERS Safety Report 17609813 (Version 1)
Quarter: 2020Q1

REPORT INFORMATION
  Report Type: Spontaneous
  Country: US (occurrence: US)
  Receive Date: 20200330
  Receipt Date: 20200330
  Transmission Date: 20200409
  Serious: No
  Sender: FDA-Public Use
  Company Number: None

PATIENT
  Age: 41 Year
  Sex: Female

DRUGS (1)
  1. LEDIPASVIR/SOFOSBUVIR 90/400 ASEGUA THERAPEUTICS [Suspect]
     Active Substance: LEDIPASVIR\SOFOSBUVIR
     Indication: CHRONIC HEPATITIS C
     Dosage: ?          OTHER DOSE:90MG/400MG;?
     Route: 048
     Dates: start: 202003

REACTIONS (1)
  - Back pain [None]

NARRATIVE: CASE EVENT DATE: 202003
